FAERS Safety Report 6511121-1 (Version None)
Quarter: 2009Q4

REPORT INFORMATION
  Report Type: 
  Country: None (occurrence: None)
  Receive Date: 20091217
  Receipt Date: 20091202
  Transmission Date: 20100525
  Serious: Yes (Disabling, Other)
  Sender: FDA-Public Use
  Company Number: 020608145A

PATIENT
  Sex: Female

DRUGS (8)
  1. SOFTSOAP ANTIBACTERIAL HAND SOAP [Suspect]
     Dosage: 1SQUIT/MANYX/DAY/DERMAL
  2. PALMOLIVE ORIGINAL NON ULTRA [Suspect]
     Dosage: ONE SQUIRT/3X A DAY/DERM
  3. MURPHY OIL SOAP CONCENTRATE [Suspect]
     Dosage: 2X A YEAR/DERMAL
  4. SOFT SOAP (UNSPECIFIED_ [Suspect]
     Dosage: ONE SQUIRT/SEVERAL TIMES A DAY/DERMAL
  5. PALMOLIVE DISH LIQUID UNSPECIFIED [Suspect]
     Dosage: ONE SQUIRT/3X A DAY/DERMAL
  6. MURPHY OIL SOAP CONCENTRATE [Suspect]
     Dosage: 2X A YEAR/DERMAL
  7. BENADRYL [Concomitant]
  8. PRESCRIPTION ALLERGY MEDICATIONS [Concomitant]

REACTIONS (10)
  - ARTHROPATHY [None]
  - BENIGN INTRACRANIAL HYPERTENSION [None]
  - EYE DISORDER [None]
  - FLUID RETENTION [None]
  - MULTI-ORGAN DISORDER [None]
  - OEDEMA PERIPHERAL [None]
  - RASH [None]
  - REACTION TO PRESERVATIVES [None]
  - SWELLING [None]
  - VISUAL IMPAIRMENT [None]
